FAERS Safety Report 14623337 (Version 1)
Quarter: 2018Q1

REPORT INFORMATION
  Report Type: Spontaneous
  Country: US (occurrence: US)
  Receive Date: 20180312
  Receipt Date: 20180312
  Transmission Date: 20180509
  Serious: No
  Sender: FDA-Public Use
  Company Number: US-CELGENEUS-USA-20180302770

PATIENT
  Sex: Female

DRUGS (13)
  1. THALOMID [Suspect]
     Active Substance: THALIDOMIDE
     Dosage: 100 MG- 50 MG
     Route: 048
     Dates: start: 201103
  2. THALOMID [Suspect]
     Active Substance: THALIDOMIDE
     Dosage: 250 MILLIGRAM
     Route: 048
     Dates: start: 201109
  3. THALOMID [Suspect]
     Active Substance: THALIDOMIDE
     Dosage: 50 MG- 150 MG
     Route: 048
     Dates: start: 201404
  4. THALOMID [Suspect]
     Active Substance: THALIDOMIDE
     Dosage: 250 MILLIGRAM
     Route: 048
     Dates: start: 201303
  5. THALOMID [Suspect]
     Active Substance: THALIDOMIDE
     Dosage: 50 MILLIGRAM
     Route: 048
     Dates: start: 20170721
  6. THALOMID [Suspect]
     Active Substance: THALIDOMIDE
     Indication: PLASMA CELL MYELOMA
     Dosage: 100 MILLIGRAM
     Route: 048
     Dates: start: 200810
  7. THALOMID [Suspect]
     Active Substance: THALIDOMIDE
     Dosage: 250 MILLIGRAM
     Route: 048
     Dates: start: 201207
  8. PREDNISONE. [Concomitant]
     Active Substance: PREDNISONE
     Indication: PRODUCT USED FOR UNKNOWN INDICATION
     Route: 065
  9. ASPIRIN. [Concomitant]
     Active Substance: ASPIRIN
     Indication: PRODUCT USED FOR UNKNOWN INDICATION
     Route: 065
  10. THALOMID [Suspect]
     Active Substance: THALIDOMIDE
     Dosage: 250 MILLIGRAM
     Route: 048
     Dates: start: 201211
  11. THALOMID [Suspect]
     Active Substance: THALIDOMIDE
     Dosage: 250 MILLIGRAM
     Route: 048
     Dates: start: 201312
  12. THALOMID [Suspect]
     Active Substance: THALIDOMIDE
     Dosage: 50 MILLIGRAM
     Route: 048
     Dates: start: 201308
  13. THALOMID [Suspect]
     Active Substance: THALIDOMIDE
     Dosage: 250 MILLIGRAM
     Route: 048
     Dates: start: 201309

REACTIONS (2)
  - Wheezing [Unknown]
  - Dyspnoea [Unknown]
